FAERS Safety Report 6250879-6 (Version None)
Quarter: 2009Q2

REPORT INFORMATION
  Report Type: 
  Country: None (occurrence: None)
  Receive Date: 20090630
  Receipt Date: 20090331
  Transmission Date: 20091009
  Serious: No
  Sender: FDA-Public Use
  Company Number: US-BAUSCH-2009BL001447

PATIENT
  Age: 60 Year
  Sex: Female

DRUGS (3)
  1. ALAWAY [Suspect]
     Indication: EYE PRURITUS
     Route: 047
     Dates: start: 20090329, end: 20090329
  2. CLARITIN /USA/ [Concomitant]
  3. IMITREX ^CERENEX^ [Concomitant]

REACTIONS (1)
  - INSTILLATION SITE IRRITATION [None]
